FAERS Safety Report 8436159-9 (Version None)
Quarter: 2012Q2

REPORT INFORMATION
  Report Type: 
  Country: None (occurrence: None)
  Receive Date: 20120614
  Receipt Date: 20120607
  Transmission Date: 20120825
  Serious: Yes (Other)
  Sender: FDA-Public Use
  Company Number: ES-PFIZER INC-2012129443

PATIENT
  Age: 72 Year
  Sex: Female
  Weight: 51 kg

DRUGS (3)
  1. TRACLEER [Interacting]
  2. SINTROM [Concomitant]
     Dosage: UNK
     Route: 048
  3. SILDENAFIL CITRATE [Suspect]
     Indication: DIGITAL ULCER
     Dosage: 20 MG, 3X/DAY
     Route: 048
     Dates: start: 20120510, end: 20120522

REACTIONS (2)
  - DRUG INTERACTION [None]
  - PROTHROMBIN TIME PROLONGED [None]
